FAERS Safety Report 25402277 (Version 1)
Quarter: 2025Q2

REPORT INFORMATION
  Report Type: Report from Study
  Country: CA (occurrence: CA)
  Receive Date: 20250605
  Receipt Date: 20250605
  Transmission Date: 20250716
  Serious: Yes (Hospitalization)
  Sender: ABBVIE
  Company Number: CA-ABBVIE-6309188

PATIENT
  Sex: Female

DRUGS (1)
  1. RINVOQ [Suspect]
     Active Substance: UPADACITINIB
     Indication: Crohn^s disease
     Dosage: 1 TABLET ONCE DAILY FOR 12 WEEKS THEN DECREASE TO 15MG ONCE DAILY
     Route: 048

REACTIONS (2)
  - Skin abrasion [Unknown]
  - Arthritis [Unknown]
